FAERS Safety Report 12891996 (Version 2)
Quarter: 2016Q4

REPORT INFORMATION
  Report Type: Spontaneous
  Country: IR (occurrence: IR)
  Receive Date: 20161028
  Receipt Date: 20161031
  Transmission Date: 20170207
  Serious: Yes (Hospitalization)
  Sender: FDA-Public Use
  Company Number: IR-ROCHE-1847139

PATIENT
  Age: 78 Year
  Sex: Female

DRUGS (3)
  1. ACTILYSE [Suspect]
     Active Substance: ALTEPLASE
     Dosage: 8MG BOLUS, FOLLOWED BY 58MG INFUSION IN NEXT 60 MINS
     Route: 042
  2. ATENOLOL. [Concomitant]
     Active Substance: ATENOLOL
     Indication: HYPERTENSION
     Route: 065
  3. ACTILYSE [Suspect]
     Active Substance: ALTEPLASE
     Indication: ISCHAEMIC STROKE
     Dosage: 8MG BOLUS, FOLLOWED BY 58MG INFUSION IN NEXT 60 MINS
     Route: 040

REACTIONS (1)
  - Acute myocardial infarction [Recovered/Resolved]
